FAERS Safety Report 6524029-2 (Version None)
Quarter: 2009Q4

REPORT INFORMATION
  Report Type: 
  Country: None (occurrence: None)
  Receive Date: 20091231
  Receipt Date: 20091218
  Transmission Date: 20100525
  Serious: Yes (Hospitalization)
  Sender: FDA-Public Use
  Company Number: JP-SANOFI-AVENTIS-A01200911197

PATIENT
  Age: 71 Year
  Sex: Female
  Weight: 50 kg

DRUGS (5)
  1. MYSLEE [Suspect]
     Route: 048
     Dates: start: 20081229, end: 20081230
  2. GASTER [Suspect]
     Indication: GASTRIC ULCER
     Route: 042
     Dates: start: 20081210, end: 20090126
  3. DEPAS [Suspect]
     Route: 048
     Dates: start: 20081229, end: 20081230
  4. DEPAS [Suspect]
     Indication: ANXIETY
     Route: 048
     Dates: start: 20081229, end: 20081230
  5. MORPHINE HYDROCHLORIDE [Suspect]
     Indication: PAIN
     Route: 041
     Dates: start: 20081203, end: 20090107

REACTIONS (5)
  - ANXIETY [None]
  - DELIRIUM [None]
  - IRRITABILITY [None]
  - RESTLESSNESS [None]
  - SLEEP DISORDER [None]
